FAERS Safety Report 10187513 (Version 1)
Quarter: 2014Q2

REPORT INFORMATION
  Report Type: Spontaneous
  Country: US (occurrence: US)
  Receive Date: 20140522
  Receipt Date: 20140522
  Transmission Date: 20141212
  Serious: No
  Sender: FDA-Public Use
  Company Number: US-SANOFI-AVENTIS-2013SA080745

PATIENT
  Age: 57 Year
  Sex: Female

DRUGS (3)
  1. SOLOSTAR [Suspect]
     Indication: TYPE 2 DIABETES MELLITUS
     Dosage: TAKEN FROM: 3-4  YRS
  2. LANTUS SOLOSTAR [Suspect]
     Indication: TYPE 2 DIABETES MELLITUS
     Dosage: TAKEN FROM: 3-4  YRS DOSE:50 UNIT(S)
     Route: 051
  3. HUMALOG [Suspect]
     Route: 065

REACTIONS (3)
  - Abdominal distension [Unknown]
  - Drug dose omission [Unknown]
  - Blood glucose increased [Unknown]
